FAERS Safety Report 7617496-4 (Version None)
Quarter: 2011Q3

REPORT INFORMATION
  Report Type: 
  Country: None (occurrence: None)
  Receive Date: 20110718
  Receipt Date: 20110714
  Transmission Date: 20111222
  Serious: Yes (Other)
  Sender: FDA-Public Use
  Company Number: US-PFIZER INC-2011160157

PATIENT
  Sex: Male
  Weight: 116.55 kg

DRUGS (2)
  1. EFFEXOR [Suspect]
     Indication: DEPRESSION
     Dosage: 75 MG, 2X/DAY
     Route: 048
     Dates: start: 20100101
  2. EFFEXOR [Suspect]
     Indication: ANXIETY

REACTIONS (3)
  - WEIGHT INCREASED [None]
  - DEPRESSION [None]
  - DRUG SCREEN FALSE POSITIVE [None]
